FAERS Safety Report 11753401 (Version 2)
Quarter: 2015Q4

REPORT INFORMATION
  Report Type: Spontaneous
  Country: CN (occurrence: CN)
  Receive Date: 20151119
  Receipt Date: 20151203
  Transmission Date: 20160304
  Serious: Yes (Other)
  Sender: FDA-Public Use
  Company Number: CN-WATSON-2015-24680

PATIENT
  Age: 12 Year
  Sex: Male

DRUGS (1)
  1. HEPARIN SODIUM (UNKNOWN) [Suspect]
     Active Substance: HEPARIN SODIUM
     Indication: ISCHAEMIA
     Dosage: INTRAVENOUS INFUSION OF HEPARIN SODIUM (10-30 U/KG. H)
     Route: 042

REACTIONS (1)
  - Gastrointestinal haemorrhage [Unknown]
